FAERS Safety Report 11933185 (Version 2)
Quarter: 2016Q2

REPORT INFORMATION
  Report Type: Report from Study
  Country: CO (occurrence: CO)
  Receive Date: 20160121
  Receipt Date: 20160624
  Transmission Date: 20160815
  Serious: Yes (Death)
  Sender: FDA-Public Use
  Company Number: CO-ASTRAZENECA-2016SE05358

PATIENT
  Age: 23894 Day
  Sex: Female
  Weight: 78 kg

DRUGS (2)
  1. BYDUREON [Suspect]
     Active Substance: EXENATIDE
     Indication: TYPE 2 DIABETES MELLITUS
     Route: 058
     Dates: start: 20150727, end: 20160108
  2. MANY DRUGS [Concomitant]

REACTIONS (2)
  - Cerebrovascular accident [Fatal]
  - Aneurysm [Fatal]

NARRATIVE: CASE EVENT DATE: 20160108
